FAERS Safety Report 23268603 (Version 1)
Quarter: 2023Q4

REPORT INFORMATION
  Report Type: Spontaneous
  Country: US (occurrence: US)
  Receive Date: 20231206
  Receipt Date: 20231206
  Transmission Date: 20240110
  Serious: Yes (Other)
  Sender: FDA-Public Use
  Company Number: US-PFIZER INC-PV202300192681

PATIENT
  Age: 74 Year

DRUGS (1)
  1. IBRANCE [Suspect]
     Active Substance: PALBOCICLIB
     Dosage: 75 MG, CYCLIC, [TAKE 75 MG BY MOUTH DAILY FOR 21 DAYS REST 7 DAYS]
     Route: 048

REACTIONS (1)
  - Leukopenia [Unknown]
